FAERS Safety Report 9972805 (Version 1)
Quarter: 2014Q1

REPORT INFORMATION
  Report Type: Spontaneous
  Country: US (occurrence: US)
  Receive Date: 20140306
  Receipt Date: 20140306
  Transmission Date: 20141002
  Serious: Yes (Hospitalization)
  Sender: FDA-Public Use
  Company Number: US-PFIZER INC-2014060128

PATIENT
  Age: 61 Year
  Sex: Female
  Weight: 52.15 kg

DRUGS (5)
  1. MENEST [Suspect]
     Indication: HORMONE REPLACEMENT THERAPY
     Dosage: 0.625 MG, 1X/DAY
     Route: 048
     Dates: start: 1999
  2. MENEST [Suspect]
     Indication: MIGRAINE
  3. DEPAKOTE [Concomitant]
     Indication: MIGRAINE
     Dosage: 500 MG, 1X/DAY
  4. MEGACE [Concomitant]
     Indication: HORMONE REPLACEMENT THERAPY
     Dosage: 20 MG, 1X/DAY
  5. PROTONIX [Concomitant]
     Indication: GASTROINTESTINAL DISORDER
     Dosage: UNK, (20MG OR 40MG) 1X/DAY

REACTIONS (1)
  - Cerebrovascular accident [Recovered/Resolved]
